FAERS Safety Report 20657566 (Version 1)
Quarter: 2022Q1

REPORT INFORMATION
  Report Type: Report from Study
  Country: US (occurrence: US)
  Receive Date: 20220331
  Receipt Date: 20220331
  Transmission Date: 20220423
  Serious: Yes (Hospitalization)
  Sender: FDA-Public Use
  Company Number: US-ABBVIE-22K-163-4339690-00

PATIENT
  Sex: Male

DRUGS (1)
  1. SKYRIZI [Suspect]
     Active Substance: RISANKIZUMAB-RZAA
     Indication: Psoriasis
     Route: 058

REACTIONS (8)
  - Dehydration [Unknown]
  - Hypotension [Unknown]
  - Renal disorder [Unknown]
  - Liver disorder [Unknown]
  - Feeding disorder [Recovered/Resolved]
  - Weight decreased [Unknown]
  - Skin exfoliation [Unknown]
  - Emotional distress [Unknown]
